FAERS Safety Report 5400192-1 (Version None)
Quarter: 2007Q3

REPORT INFORMATION
  Report Type: 
  Country: None (occurrence: None)
  Receive Date: 20070730
  Receipt Date: 20070724
  Transmission Date: 20080115
  Serious: Yes (Death)
  Sender: FDA-Public Use
  Company Number: FR-AVENTIS-200712366FR

PATIENT
  Age: 66 Year
  Sex: Male

DRUGS (7)
  1. LASILIX                            /00032601/ [Suspect]
     Route: 048
  2. COLCHICINE [Suspect]
     Route: 048
  3. ALLOPURINOL [Suspect]
     Route: 048
  4. GLUCOPHAGE [Suspect]
     Indication: DIABETES MELLITUS
     Route: 048
  5. ZECLAR [Suspect]
     Route: 048
  6. ACE INHIBITOR NOS [Concomitant]
  7. CHOLESTEROL- AND TRIGLYCERIDE REDUCERS [Concomitant]

REACTIONS (5)
  - BLOOD CREATINE PHOSPHOKINASE INCREASED [None]
  - HEPATITIS [None]
  - PANCYTOPENIA [None]
  - RENAL FAILURE ACUTE [None]
  - SEPTIC SHOCK [None]
